FAERS Safety Report 4304392-3 (Version None)
Quarter: 2004Q1

REPORT INFORMATION
  Report Type: 
  Country: None (occurrence: None)
  Receive Date: 20040224
  Receipt Date: 20040212
  Transmission Date: 20041129
  Serious: Yes (Hospitalization)
  Sender: FDA-Public Use
  Company Number: US-JNJFOC-20040100903

PATIENT
  Age: 46 Year
  Sex: Female
  Weight: 58.0604 kg

DRUGS (4)
  1. INFLIXIMAB (INFLIXIMAB, RECOMBINANT) LYOPHILIZED POWDER [Suspect]
     Indication: CROHN'S DISEASE
     Dosage: 5 MG/KG, INTRAVENOUS
     Route: 042
     Dates: start: 20031108
  2. INFLIXIMAB (INFLIXIMAB, RECOMBINANT)LYOPHILIZED POWDER [Suspect]
  3. ANTIBIOTICS (ANTIBIOTICS) [Concomitant]
  4. PREDNISONE [Concomitant]

REACTIONS (7)
  - ABDOMINAL PAIN [None]
  - CHILLS [None]
  - DEHYDRATION [None]
  - HYPOKALAEMIA [None]
  - MUSCLE CRAMP [None]
  - MYALGIA [None]
  - PYREXIA [None]
